FAERS Safety Report 4531736-X (Version None)
Quarter: 2004Q4

REPORT INFORMATION
  Report Type: 
  Country: None (occurrence: None)
  Receive Date: 20041220
  Receipt Date: 20030409
  Transmission Date: 20050328
  Serious: Yes (Hospitalization)
  Sender: FDA-Public Use
  Company Number: GB-ROCHE-335630

PATIENT
  Age: 29 Year
  Sex: Male

DRUGS (4)
  1. MIDAZOLAM HYDROCHLORIDE [Suspect]
     Indication: SEDATION
     Route: 042
  2. PROPOFOL [Suspect]
     Indication: SEDATION
     Dosage: INCREMENTAL UNTIL  A TOTAL OF 100 MG WAS GIVEN.
     Route: 042
  3. CARBAMAZEPINE [Concomitant]
  4. PHENYTOIN [Concomitant]

REACTIONS (4)
  - AREFLEXIA [None]
  - CLONUS [None]
  - HEMIPLEGIA TRANSIENT [None]
  - HYPOTONIA [None]
